FAERS Safety Report 6588823-4 (Version None)
Quarter: 2010Q1

REPORT INFORMATION
  Report Type: 
  Country: None (occurrence: None)
  Receive Date: 20100212
  Receipt Date: 20100128
  Transmission Date: 20100710
  Serious: Yes (Disabling)
  Sender: FDA-Public Use
  Company Number: A-CH2009-31956

PATIENT
  Age: 76 Year
  Sex: Male

DRUGS (8)
  1. TRACLEER [Suspect]
     Indication: IDIOPATHIC PULMONARY FIBROSIS
     Dosage: 125 MG, BID, ORAL
     Route: 048
     Dates: start: 20091111, end: 20091206
  2. PREDNISOLONE [Concomitant]
  3. DILTIAZEM [Concomitant]
  4. ISOSORBIDE MONONITRATE [Concomitant]
  5. RISEDRONATE SODIUM [Concomitant]
  6. AZATHIOPRINE [Concomitant]
  7. SIMVASTATIN [Concomitant]
  8. FUROSEMIDE [Concomitant]

REACTIONS (3)
  - CERUMEN IMPACTION [None]
  - DEAFNESS BILATERAL [None]
  - EAR DISCOMFORT [None]
